FAERS Safety Report 5921615-5 (Version None)
Quarter: 2008Q3

REPORT INFORMATION
  Report Type: 
  Country: None (occurrence: None)
  Receive Date: 20080909
  Receipt Date: 20071005
  Transmission Date: 20090109
  Serious: Yes (Life-Threatening, Other)
  Sender: FDA-Public Use
  Company Number: 163-20785-06091007

PATIENT
  Age: 42 Year
  Sex: Female

DRUGS (8)
  1. THALOMID [Suspect]
     Indication: AMYLOIDOSIS
     Dosage: 50 MG, 1 IN 1 D, ORAL ; 100 MG, 1 IN 1 D
     Route: 048
     Dates: start: 20030926, end: 20031120
  2. THALOMID [Suspect]
     Indication: AMYLOIDOSIS
     Dosage: 50 MG, 1 IN 1 D, ORAL ; 100 MG, 1 IN 1 D
     Route: 048
     Dates: start: 20060901, end: 20061001
  3. DEXAMETHASONE TAB [Suspect]
     Indication: AMYLOIDOSIS
  4. POTASSIUM CHLORIDE [Concomitant]
  5. LASIX [Concomitant]
  6. ACYCLOVIR [Concomitant]
  7. PROTONIX [Concomitant]
  8. DIFLUCAN [Concomitant]

REACTIONS (1)
  - PULMONARY EMBOLISM [None]
